FAERS Safety Report 21944076 (Version 1)
Quarter: 2023Q1

REPORT INFORMATION
  Report Type: Spontaneous
  Country: US (occurrence: US)
  Receive Date: 20230202
  Receipt Date: 20230202
  Transmission Date: 20230417
  Serious: No
  Sender: FDA-Public Use
  Company Number: US-OYSTER POINT PHARMA, INC-US-OYS-22-001265

PATIENT
  Sex: Female

DRUGS (2)
  1. TYRVAYA [Suspect]
     Active Substance: VARENICLINE TARTRATE
     Indication: Dry eye
     Dosage: UNK, UNK
     Route: 045
     Dates: start: 2022, end: 2022
  2. TYRVAYA [Suspect]
     Active Substance: VARENICLINE TARTRATE
     Dosage: UNK, UNK
     Route: 045
     Dates: start: 20221121

REACTIONS (2)
  - Sinusitis [Unknown]
  - Product administration error [Unknown]

NARRATIVE: CASE EVENT DATE: 20220101
